FAERS Safety Report 19932757 (Version 1)
Quarter: 2021Q4

REPORT INFORMATION
  Report Type: Spontaneous
  Country: US (occurrence: US)
  Receive Date: 20211007
  Receipt Date: 20211007
  Transmission Date: 20220304
  Serious: Yes (Other)
  Sender: FDA-Public Use
  Company Number: None

PATIENT
  Age: 64 Year
  Sex: Female
  Weight: 56.25 kg

DRUGS (1)
  1. GAMMAPLEX [Suspect]
     Active Substance: HUMAN IMMUNOGLOBULIN G
     Indication: Multiple sclerosis
     Dosage: OTHER FREQUENCY:EVERY 6 WEEKS;
     Route: 042

REACTIONS (7)
  - Anaphylactic reaction [None]
  - Infusion related reaction [None]
  - Nausea [None]
  - Vomiting [None]
  - Blood pressure decreased [None]
  - Dysphagia [None]
  - Refusal of treatment by patient [None]

NARRATIVE: CASE EVENT DATE: 20211006
